FAERS Safety Report 10053944 (Version 1)
Quarter: 2014Q2

REPORT INFORMATION
  Report Type: Spontaneous
  Country: US (occurrence: US)
  Receive Date: 20140402
  Receipt Date: 20140402
  Transmission Date: 20141212
  Serious: Yes (Other)
  Sender: FDA-Public Use
  Company Number: US-AMGEN-USASP2014017164

PATIENT
  Sex: Female

DRUGS (2)
  1. ENBREL [Suspect]
     Indication: RHEUMATOID ARTHRITIS
     Dosage: 50 MG, UNK
     Route: 065
     Dates: start: 201311
  2. METHOTREXATE [Concomitant]
     Dosage: UNK

REACTIONS (4)
  - Injection site cellulitis [Recovered/Resolved]
  - Influenza [Unknown]
  - Nasopharyngitis [Unknown]
  - Injection site reaction [Unknown]
